FAERS Safety Report 13078417 (Version 5)
Quarter: 2018Q1

REPORT INFORMATION
  Report Type: Spontaneous
  Country: US (occurrence: US)
  Receive Date: 20170102
  Receipt Date: 20180302
  Transmission Date: 20180508
  Serious: Yes (Other)
  Sender: FDA-Public Use
  Company Number: US-ASTRAZENECA-2016SF38061

PATIENT
  Age: 549 Month
  Sex: Female
  Weight: 58.1 kg

DRUGS (49)
  1. AMITRIPTYLINE [Concomitant]
     Active Substance: AMITRIPTYLINE
     Indication: VESTIBULAR DISORDER
     Route: 048
  2. GABAPENTIN. [Concomitant]
     Active Substance: GABAPENTIN
     Indication: VESTIBULAR DISORDER
     Dosage: 800.0MG AS REQUIRED
     Route: 048
     Dates: start: 2016
  3. BACLOFEN. [Concomitant]
     Active Substance: BACLOFEN
     Indication: MUSCLE SPASMS
     Route: 048
     Dates: start: 20170118
  4. XGEVA [Concomitant]
     Active Substance: DENOSUMAB
     Indication: METASTASES TO BONE
     Dosage: EVERY SIX WEEKS
     Route: 030
     Dates: start: 20150629
  5. NORTRIPTYLINE HYDROCHLORIDE. [Concomitant]
     Active Substance: NORTRIPTYLINE HYDROCHLORIDE
     Dates: start: 20170118
  6. BACLOFEN. [Concomitant]
     Active Substance: BACLOFEN
     Indication: MUSCLE SPASMS
     Route: 048
     Dates: start: 2015
  7. XGEVA [Concomitant]
     Active Substance: DENOSUMAB
     Indication: METASTASES TO BONE
     Dosage: EVERY SIX WEEKS
     Route: 030
     Dates: start: 2016
  8. VITAMIN D3 [Concomitant]
     Active Substance: CHOLECALCIFEROL
     Dates: start: 20150629
  9. MILK THISTLE [Concomitant]
     Active Substance: DIETARY SUPPLEMENT\HERBALS\MILK THISTLE
     Route: 048
     Dates: start: 20150629
  10. NYSTATIN. [Concomitant]
     Active Substance: NYSTATIN
     Dates: start: 20150629
  11. PROBIOTIC [Concomitant]
     Active Substance: PROBIOTICS NOS
     Dates: start: 20150629
  12. TAGRISSO [Suspect]
     Active Substance: OSIMERTINIB
     Indication: LUNG CARCINOMA CELL TYPE UNSPECIFIED STAGE I
     Route: 048
     Dates: start: 201609
  13. TAGRISSO [Suspect]
     Active Substance: OSIMERTINIB
     Indication: NON-SMALL CELL LUNG CANCER METASTATIC
     Route: 048
     Dates: start: 201609
  14. PROLIA [Concomitant]
     Active Substance: DENOSUMAB
     Dates: start: 20150629
  15. TOLTERODINE L-TARTRATE [Concomitant]
     Active Substance: TOLTERODINE TARTRATE
     Route: 048
     Dates: start: 20170118
  16. XANAX [Concomitant]
     Active Substance: ALPRAZOLAM
     Indication: PANIC ATTACK
     Dosage: 0.5MG AS REQUIRED
     Route: 048
     Dates: start: 2015
  17. ALBUTEROL SULFATE. [Concomitant]
     Active Substance: ALBUTEROL SULFATE
     Dosage: UNKNOWN
     Route: 065
     Dates: start: 20150629
  18. COMBIVENT [Concomitant]
     Active Substance: ALBUTEROL SULFATE\IPRATROPIUM BROMIDE
     Route: 055
     Dates: start: 20150420
  19. MULTI VITAMIN [Concomitant]
     Active Substance: VITAMINS
     Dates: start: 20150629
  20. DUONEB [Concomitant]
     Active Substance: ALBUTEROL SULFATE\IPRATROPIUM BROMIDE
     Dates: start: 20150629
  21. L-LYSINE [Concomitant]
     Active Substance: LYSINE
     Dates: start: 20150629
  22. MAGNESIUM [Concomitant]
     Active Substance: MAGNESIUM
     Dates: start: 20150629
  23. GABAPENTIN. [Concomitant]
     Active Substance: GABAPENTIN
     Indication: VESTIBULAR DISORDER
     Route: 048
     Dates: start: 201512
  24. NORTRIPTYLINE [Concomitant]
     Active Substance: NORTRIPTYLINE
     Indication: VESTIBULAR DISORDER
     Route: 048
     Dates: start: 201611
  25. TARCEVA [Concomitant]
     Active Substance: ERLOTINIB HYDROCHLORIDE
     Indication: NEOPLASM MALIGNANT
     Dosage: UNKNOWN
     Route: 065
  26. HYDROCODONE BITARTRATE AND ACETAMINOPHEN [Concomitant]
     Active Substance: ACETAMINOPHEN\HYDROCODONE BITARTRATE
     Route: 048
     Dates: start: 20170118
  27. MELATONIN [Concomitant]
     Active Substance: MELATONIN
     Route: 048
     Dates: start: 20150629
  28. VITAMIN C [Concomitant]
     Active Substance: ASCORBIC ACID
     Route: 048
  29. CYMBALTA [Concomitant]
     Active Substance: DULOXETINE HYDROCHLORIDE
     Route: 048
     Dates: start: 20171026
  30. TAGRISSO [Suspect]
     Active Substance: OSIMERTINIB
     Indication: LUNG CARCINOMA CELL TYPE UNSPECIFIED STAGE I
     Route: 048
     Dates: start: 20170120
  31. AMITRIPTYLINE [Concomitant]
     Active Substance: AMITRIPTYLINE
     Indication: VESTIBULAR DISORDER
     Route: 048
     Dates: end: 201611
  32. GABAPENTIN. [Concomitant]
     Active Substance: GABAPENTIN
     Indication: VESTIBULAR DISORDER
     Route: 048
     Dates: start: 201510
  33. TOLTERODINE [Concomitant]
     Active Substance: TOLTERODINE
     Indication: URINARY INCONTINENCE
     Route: 048
     Dates: start: 201612
  34. VALIUM [Concomitant]
     Active Substance: DIAZEPAM
     Indication: TINNITUS
     Dosage: 5.0MG AS REQUIRED
     Route: 048
     Dates: start: 2016
  35. XANAX [Concomitant]
     Active Substance: ALPRAZOLAM
     Indication: PANIC ATTACK
     Dosage: 0.25MG AS REQUIRED
     Route: 048
     Dates: start: 201508
  36. CALCIUM [Concomitant]
     Active Substance: CALCIUM
     Route: 048
     Dates: start: 20150629
  37. FLOVENT [Concomitant]
     Active Substance: FLUTICASONE PROPIONATE
     Dates: start: 20170118
  38. GARLIC. [Concomitant]
     Active Substance: GARLIC
     Dates: start: 20150629
  39. IRON [Concomitant]
     Active Substance: IRON
     Dates: start: 20150629
  40. POTASSIUM [Concomitant]
     Active Substance: POTASSIUM
     Dates: start: 20170118
  41. TAGRISSO [Suspect]
     Active Substance: OSIMERTINIB
     Indication: NON-SMALL CELL LUNG CANCER METASTATIC
     Route: 048
     Dates: start: 20170120
  42. GABAPENTIN. [Concomitant]
     Active Substance: GABAPENTIN
     Indication: VESTIBULAR DISORDER
     Dosage: 800.0MG AS REQUIRED
     Route: 048
     Dates: start: 20151231
  43. DIAZEPAM. [Concomitant]
     Active Substance: DIAZEPAM
     Dates: start: 20170118
  44. PROVENTIL HFA INHALER [Concomitant]
     Dates: start: 20150420
  45. GABAPENTIN. [Concomitant]
     Active Substance: GABAPENTIN
     Indication: VESTIBULAR DISORDER
     Route: 048
     Dates: start: 2015
  46. XANAX [Concomitant]
     Active Substance: ALPRAZOLAM
     Indication: PANIC ATTACK
     Dosage: AS REQUIRED
     Route: 048
     Dates: start: 20150916
  47. VITAMIN B COMPLEX [Concomitant]
     Active Substance: CYANOCOBALAMIN\DEXPANTHENOL\NIACINAMIDE\PYRIDOXINE HYDROCHLORIDE\RIBOFLAVIN 5^-PHOSPHATE SODIUM\THIAMINE HYDROCHLORIDE\VITAMIN B COMPLEX
     Dosage: UNKNOWN
     Route: 065
  48. ZOFRAN [Concomitant]
     Active Substance: ONDANSETRON HYDROCHLORIDE
     Dates: start: 20150916
  49. VITAMIN B COMPLEX [Concomitant]
     Active Substance: CYANOCOBALAMIN\DEXPANTHENOL\NIACINAMIDE\PYRIDOXINE HYDROCHLORIDE\RIBOFLAVIN 5^-PHOSPHATE SODIUM\THIAMINE HYDROCHLORIDE\VITAMIN B COMPLEX
     Dates: start: 20150629

REACTIONS (16)
  - Hemiparaesthesia [Unknown]
  - Trichorrhexis [Not Recovered/Not Resolved]
  - Application site pustules [Recovering/Resolving]
  - Cerebral disorder [Unknown]
  - Dysphonia [Unknown]
  - Hand fracture [Unknown]
  - Mass [Unknown]
  - Muscle spasms [Unknown]
  - Pain [Unknown]
  - Weight increased [Not Recovered/Not Resolved]
  - Tooth disorder [Unknown]
  - Skin exfoliation [Unknown]
  - Laceration [Unknown]
  - Hair texture abnormal [Not Recovered/Not Resolved]
  - Localised infection [Unknown]
  - Drug dose omission [Unknown]

NARRATIVE: CASE EVENT DATE: 201609
